FAERS Safety Report 14611359 (Version 2)
Quarter: 2018Q2

REPORT INFORMATION
  Report Type: Report from Study
  Country: AR (occurrence: AR)
  Receive Date: 20180308
  Receipt Date: 20180405
  Transmission Date: 20180711
  Serious: Yes (Hospitalization)
  Sender: FDA-Public Use
  Company Number: AR-ROCHE-2084584

PATIENT
  Sex: Female

DRUGS (3)
  1. XOLAIR [Suspect]
     Active Substance: OMALIZUMAB
     Indication: ASTHMA
     Dosage: 2 DF (300 MG), UNK
     Route: 065
     Dates: start: 20171101
  2. XOLAIR [Suspect]
     Active Substance: OMALIZUMAB
     Dosage: 2 DF (300 MG), UNK
     Route: 065
     Dates: start: 20171103
  3. XOLAIR [Suspect]
     Active Substance: OMALIZUMAB
     Dosage: 4 DF (600 MG), UNK
     Route: 065
     Dates: start: 20171116, end: 201711

REACTIONS (8)
  - Urinary incontinence [Recovered/Resolved]
  - Dose calculation error [Unknown]
  - Fatigue [Not Recovered/Not Resolved]
  - Weight increased [Recovered/Resolved]
  - Drug administration error [Unknown]
  - Agitation [Not Recovered/Not Resolved]
  - Malaise [Recovered/Resolved]
  - Cough [Recovered/Resolved]
